FAERS Safety Report 8449864-5 (Version None)
Quarter: 2012Q2

REPORT INFORMATION
  Report Type: 
  Country: None (occurrence: None)
  Receive Date: 20120620
  Receipt Date: 20120613
  Transmission Date: 20120825
  Serious: Yes (Hospitalization, Other)
  Sender: FDA-Public Use
  Company Number: CA-US-EMD SERONO, INC.-7136559

PATIENT
  Sex: Male

DRUGS (2)
  1. MOTRIN [Concomitant]
     Indication: PRODUCT USED FOR UNKNOWN INDICATION
  2. REBIF [Suspect]
     Indication: MULTIPLE SCLEROSIS
     Route: 058
     Dates: start: 20100208

REACTIONS (4)
  - DURAL FISTULA [None]
  - FALL [None]
  - CEREBROVASCULAR ACCIDENT [None]
  - ANEURYSM [None]
